FAERS Safety Report 9964550 (Version 1)
Quarter: 2014Q1

REPORT INFORMATION
  Report Type: Spontaneous
  Country: US (occurrence: US)
  Receive Date: 20140305
  Receipt Date: 20140305
  Transmission Date: 20141002
  Serious: No
  Sender: FDA-Public Use
  Company Number: US-TEVA-463541USA

PATIENT
  Age: 77 Year
  Sex: Female
  Weight: 59.02 kg

DRUGS (5)
  1. AZILECT [Suspect]
     Indication: PARKINSON^S DISEASE
     Dates: start: 20131201
  2. GLUCOSAMINE [Concomitant]
     Indication: SUPPLEMENTATION THERAPY
  3. VITAMINS [Concomitant]
     Indication: SUPPLEMENTATION THERAPY
  4. NATURAL OMEGA 3 BRAIN FORMULA (FISH OIL) [Concomitant]
     Indication: SUPPLEMENTATION THERAPY
  5. GOLDEN FLOWER CHINESE HERBS [Concomitant]
     Indication: SUPPLEMENTATION THERAPY

REACTIONS (1)
  - Epistaxis [Recovered/Resolved]
